FAERS Safety Report 5378533-3 (Version None)
Quarter: 2007Q3

REPORT INFORMATION
  Report Type: 
  Country: None (occurrence: None)
  Receive Date: 20070705
  Receipt Date: 20070625
  Transmission Date: 20080115
  Serious: Yes (Hospitalization)
  Sender: FDA-Public Use
  Company Number: FR-ASTRAZENECA-2007CG00967

PATIENT
  Age: 29661 Day
  Sex: Female

DRUGS (6)
  1. OMEPRAZOLE [Suspect]
     Route: 048
     Dates: start: 20040901, end: 20070321
  2. ALDACTAZINE [Suspect]
     Route: 048
     Dates: start: 20040901, end: 20070321
  3. TANAKAN [Concomitant]
     Route: 048
     Dates: start: 20040901
  4. NICERGOLINE [Concomitant]
     Dates: start: 20040901
  5. DILTIAZEM [Concomitant]
     Dates: start: 20040901
  6. ASPIRIN [Concomitant]
     Dates: start: 20040901

REACTIONS (1)
  - PEMPHIGOID [None]
